FAERS Safety Report 17096280 (Version 1)
Quarter: 2019Q4

REPORT INFORMATION
  Report Type: Spontaneous
  Country: FR (occurrence: FR)
  Receive Date: 20191202
  Receipt Date: 20191202
  Transmission Date: 20200122
  Serious: Yes (Hospitalization)
  Sender: FDA-Public Use
  Company Number: FR-BRISTOL-MYERS SQUIBB COMPANY-BMS-2019-113803

PATIENT
  Age: 73 Year
  Sex: Female
  Weight: 71 kg

DRUGS (3)
  1. ELIQUIS [Suspect]
     Active Substance: APIXABAN
     Indication: CEREBROVASCULAR ACCIDENT PROPHYLAXIS
     Dosage: 10 MILLIGRAM, 1 DAY
     Route: 048
     Dates: start: 20191024, end: 20191107
  2. PREVNAR 13 [Suspect]
     Active Substance: PNEUMOCOCCAL 13-VALENT CONJUGATE VACCINE
     Indication: IMMUNISATION
     Dosage: 1 DOSAGE FORM, 1 TOTAL
     Route: 058
     Dates: start: 20191101, end: 20191101
  3. INFLUVAC [Suspect]
     Active Substance: INFLUENZA VIRUS VACCINE TRIVALENT TYPE A+B
     Indication: IMMUNISATION
     Dosage: 1 DOSAGE FORM, 1 TOTAL
     Route: 058
     Dates: start: 20191101, end: 20191101

REACTIONS (1)
  - Rash maculo-papular [Recovering/Resolving]

NARRATIVE: CASE EVENT DATE: 20191103
